FAERS Safety Report 19190820 (Version 1)
Quarter: 2021Q2

REPORT INFORMATION
  Report Type: Spontaneous
  Country: FR (occurrence: FR)
  Receive Date: 20210428
  Receipt Date: 20210428
  Transmission Date: 20210717
  Serious: Yes (Life-Threatening)
  Sender: FDA-Public Use
  Company Number: FR-009507513-2104FRA007071

PATIENT
  Age: 54 Year
  Sex: Male
  Weight: 59 kg

DRUGS (5)
  1. COMIRNATY [Concomitant]
     Active Substance: TOZINAMERAN
     Indication: COVID-19 IMMUNISATION
     Route: 030
     Dates: start: 20210303, end: 20210303
  2. ALIMTA [Suspect]
     Active Substance: PEMETREXED DISODIUM
     Indication: LUNG ADENOCARCINOMA
     Dosage: 500MG/M2
     Route: 042
     Dates: start: 20201001
  3. CISPLATIN. [Concomitant]
     Active Substance: CISPLATIN
     Indication: LUNG ADENOCARCINOMA
     Route: 042
     Dates: start: 20201001, end: 20201001
  4. CARBOPLATIN. [Concomitant]
     Active Substance: CARBOPLATIN
     Indication: LUNG ADENOCARCINOMA
     Route: 042
     Dates: start: 20201020, end: 20201207
  5. KEYTRUDA [Suspect]
     Active Substance: PEMBROLIZUMAB
     Indication: LUNG ADENOCARCINOMA
     Dosage: 200 MG/INJECTION
     Route: 042
     Dates: start: 20201001

REACTIONS (2)
  - Ascites [Not Recovered/Not Resolved]
  - Pleural effusion [Not Recovered/Not Resolved]

NARRATIVE: CASE EVENT DATE: 20210308
